FAERS Safety Report 19979280 (Version 2)
Quarter: 2021Q4

REPORT INFORMATION
  Report Type: Spontaneous
  Country: FR (occurrence: FR)
  Receive Date: 20211021
  Receipt Date: 20211021
  Transmission Date: 20220303
  Serious: Yes (Other)
  Sender: FDA-Public Use
  Company Number: FR-ABBVIE-21K-056-4126488-00

PATIENT
  Age: 58 Year
  Sex: Female
  Weight: 58 kg

DRUGS (2)
  1. VALPROATE SODIUM [Suspect]
     Active Substance: VALPROATE SODIUM
     Indication: Petit mal epilepsy
     Route: 048
     Dates: start: 20150106, end: 201602
  2. VALPROATE SODIUM [Suspect]
     Active Substance: VALPROATE SODIUM
     Indication: Petit mal epilepsy
     Route: 048
     Dates: start: 201401, end: 20150106

REACTIONS (2)
  - Premature menopause [Not Recovered/Not Resolved]
  - Hemihypertrophy [Not Recovered/Not Resolved]

NARRATIVE: CASE EVENT DATE: 20170130
